FAERS Safety Report 5283575-2 (Version None)
Quarter: 2007Q2

REPORT INFORMATION
  Report Type: 
  Country: None (occurrence: None)
  Receive Date: 20070402
  Receipt Date: 20070323
  Transmission Date: 20071010
  Serious: Yes (Hospitalization)
  Sender: FDA-Public Use
  Company Number: FR-ROCHE-486801

PATIENT
  Age: 73 Year
  Sex: Male

DRUGS (13)
  1. ROCEPHIN [Suspect]
     Indication: LUNG INFECTION
     Dosage: FORMULATION REPORTED AS INJECTABLE SOLUTION.
     Route: 030
     Dates: start: 20061205, end: 20061209
  2. MONOZECLAR [Suspect]
     Indication: LUNG INFECTION
     Dosage: REPORTED AS MONOZECLAR 500.
     Route: 048
     Dates: start: 20061205, end: 20061214
  3. TRIATEC [Concomitant]
     Dosage: DOSAGE REGIMEN REPORTED AS 1.25 BID.
     Route: 048
     Dates: start: 20051215
  4. PLAVIX [Concomitant]
     Dosage: REPORTED AS PLAVIX 75. DOSAGE REPOTED AS 1 DOSE PER DAY.
  5. FUROSEMIDE [Concomitant]
     Dosage: REPORTED AS FUROSEMIDE CHOAY. DOSAGE REPORTED AS 2 DOSES PER DAY.
     Route: 048
  6. NOVONORM [Concomitant]
     Dosage: REPORTED AS NOVONORM 0.5. DOSAGE REPORTED AS 3 DOSES PER DAY.
  7. PNEUMOREL [Concomitant]
     Dosage: REPORTED AS PNEUMOREL 80. DOSAGE REPORTED AS 3 DOSES PER DAY.
  8. SERETIDE [Concomitant]
     Dosage: REPORTED AS SERETIDE 500 DISKUS. DOSAGE REPORTED AS 2 DOSES PER DAY.
  9. XATRAL [Concomitant]
     Dosage: REPORTED AS XATRAL 10. DOSAGE FORM REPORTED AS 1 DOSE PER DAY.
  10. TAVANIC [Concomitant]
     Indication: LUNG INFECTION
     Dosage: REPORTED AS TAVANIC 500. DOSAGE FORM REPORTED AS 1 DOSE PER DAY.
     Dates: start: 20061007, end: 20061011
  11. KETEK [Concomitant]
     Indication: BRONCHITIS
     Dosage: DOSAGE REPORTED AS 2 DOSES PER DAY.
     Dates: start: 20061013, end: 20061017
  12. MUCOMYST [Concomitant]
     Indication: BRONCHITIS
     Dosage: DOSAGE FORM REPORTED AS 3 DOSES PER DAY.
     Dates: start: 20061013, end: 20061017
  13. SURELEN [Concomitant]
     Indication: BRONCHITIS
     Dosage: DOSAGE AND DAILY DOSE REPORTED AS A VIAL PER DAY.
     Dates: start: 20061013, end: 20061017

REACTIONS (1)
  - RENAL FAILURE [None]
